FAERS Safety Report 9482354 (Version 1)
Quarter: 2013Q3

REPORT INFORMATION
  Report Type: Spontaneous
  Country: FR (occurrence: FR)
  Receive Date: 20130828
  Receipt Date: 20130828
  Transmission Date: 20140515
  Serious: Yes (Hospitalization)
  Sender: FDA-Public Use
  Company Number: FR-SANOFI-AVENTIS-2013SA084087

PATIENT
  Age: 82 Year
  Sex: Female

DRUGS (13)
  1. FUROSEMIDE [Suspect]
     Indication: PRODUCT USED FOR UNKNOWN INDICATION
     Route: 048
     Dates: end: 20130627
  2. RANITIDINE HYDROCHLORIDE [Suspect]
     Indication: PRODUCT USED FOR UNKNOWN INDICATION
     Route: 048
     Dates: end: 20130626
  3. ESOMEPRAZOLE [Suspect]
     Indication: PRODUCT USED FOR UNKNOWN INDICATION
     Route: 048
     Dates: end: 20130626
  4. COAPROVEL [Suspect]
     Indication: PRODUCT USED FOR UNKNOWN INDICATION
     Dosage: STRENGTH: 25 MG + 300 MG
     Route: 048
     Dates: end: 20130626
  5. EUCREAS [Suspect]
     Indication: PRODUCT USED FOR UNKNOWN INDICATION
     Dosage: DOSE:50MG+1000 MGX2?STRENGTH: 1000 MG+50 MG
     Route: 048
     Dates: end: 20130626
  6. LEVOTHYROX [Concomitant]
  7. PLAVIX [Concomitant]
  8. PRAVASTATIN SODIUM [Concomitant]
  9. TARDYFERON [Concomitant]
  10. IDEOS [Concomitant]
  11. DUPHALAC [Concomitant]
  12. ADENURIC [Concomitant]
  13. GALVUS [Concomitant]

REACTIONS (3)
  - Vertigo [Recovered/Resolved]
  - Malaise [Recovered/Resolved]
  - Hyponatraemia [Recovered/Resolved]
